FAERS Safety Report 6457678-0 (Version None)
Quarter: 2009Q4

REPORT INFORMATION
  Report Type: 
  Country: None (occurrence: None)
  Receive Date: 20091120
  Receipt Date: 20091116
  Transmission Date: 20100525
  Serious: Yes (Hospitalization)
  Sender: FDA-Public Use
  Company Number: 20096126

PATIENT
  Age: 55 Year
  Sex: Male

DRUGS (1)
  1. BACLOFEN [Suspect]
     Indication: MUSCLE SPASTICITY
     Dosage: 265 MCG, DAILY, INTRATHECAL
     Route: 037
     Dates: start: 20070330

REACTIONS (3)
  - ABDOMINAL DISCOMFORT [None]
  - MEDICAL DEVICE COMPLICATION [None]
  - SKIN SWELLING [None]
